FAERS Safety Report 7345659-4 (Version None)
Quarter: 2011Q1

REPORT INFORMATION
  Report Type: 
  Country: None (occurrence: None)
  Receive Date: 20110310
  Receipt Date: 20110304
  Transmission Date: 20110831
  Serious: Yes (Hospitalization)
  Sender: FDA-Public Use
  Company Number: B0700073A

PATIENT
  Age: 56 Year
  Sex: Female
  Weight: 134.1 kg

DRUGS (4)
  1. AVANDIA [Suspect]
     Indication: DIABETES MELLITUS
     Dosage: 4MG PER DAY
     Route: 048
     Dates: start: 20060701, end: 20070522
  2. GLYBURIDE [Concomitant]
  3. LOVASTATIN [Concomitant]
  4. POTASSIUM CHLORIDE [Concomitant]

REACTIONS (2)
  - MYOCARDIAL ISCHAEMIA [None]
  - PAIN [None]
